FAERS Safety Report 14620370 (Version 1)
Quarter: 2018Q1

REPORT INFORMATION
  Report Type: Spontaneous
  Country: US (occurrence: US)
  Receive Date: 20180309
  Receipt Date: 20180309
  Transmission Date: 20180509
  Serious: Yes (Life-Threatening, Disabling, Other)
  Sender: FDA-Public Use
  Company Number: None

PATIENT
  Age: 54 Year
  Sex: Female
  Weight: 77.11 kg

DRUGS (4)
  1. KEYTRUDA [Suspect]
     Active Substance: PEMBROLIZUMAB
  2. ELMIRON [Concomitant]
     Active Substance: PENTOSAN POLYSULFATE SODIUM
  3. NEULASTA [Concomitant]
     Active Substance: PEGFILGRASTIM
  4. ONDANSETRON. [Concomitant]
     Active Substance: ONDANSETRON

REACTIONS (4)
  - Dyspnoea [None]
  - Paralysis [None]
  - Lymphadenopathy [None]
  - Swelling [None]

NARRATIVE: CASE EVENT DATE: 20180307
